FAERS Safety Report 5113848-5 (Version None)
Quarter: 2006Q3

REPORT INFORMATION
  Report Type: 
  Country: None (occurrence: None)
  Receive Date: 20060925
  Receipt Date: 20060913
  Transmission Date: 20061208
  Serious: Yes (Hospitalization)
  Sender: FDA-Public Use
  Company Number: IT-BRISTOL-MYERS SQUIBB COMPANY-13510086

PATIENT
  Age: 31 Year
  Sex: Male

DRUGS (3)
  1. ABILIFY [Suspect]
     Indication: OBSESSIVE-COMPULSIVE DISORDER
  2. DAPAROX [Suspect]
     Dates: start: 20060620, end: 20060820
  3. LASIX [Suspect]
     Route: 048
     Dates: start: 20060818, end: 20060820

REACTIONS (2)
  - GRAND MAL CONVULSION [None]
  - INCONTINENCE [None]
